FAERS Safety Report 6272916-5 (Version None)
Quarter: 2009Q3

REPORT INFORMATION
  Report Type: 
  Country: None (occurrence: None)
  Receive Date: 20090717
  Receipt Date: 20090708
  Transmission Date: 20100115
  Serious: Yes (Other)
  Sender: FDA-Public Use
  Company Number: US-PFIZER INC-2009238967

PATIENT
  Sex: Male

DRUGS (3)
  1. LIPITOR [Suspect]
     Indication: BLOOD CHOLESTEROL INCREASED
     Dosage: 80 MG, 1X/DAY
     Dates: start: 20081201
  2. ACETYLSALICYLIC ACID [Concomitant]
  3. CLOPIDOGREL [Concomitant]

REACTIONS (1)
  - OPTIC NERVE INJURY [None]
